FAERS Safety Report 6162051-9 (Version None)
Quarter: 2009Q2

REPORT INFORMATION
  Report Type: 
  Country: None (occurrence: None)
  Receive Date: 20090417
  Receipt Date: 20090417
  Transmission Date: 20091009
  Serious: Yes (Hospitalization)
  Sender: FDA-Public Use
  Company Number: None

PATIENT
  Age: 62 Year
  Sex: Male
  Weight: 93 kg

DRUGS (1)
  1. GENTAMICIN [Suspect]
     Dosage: 250 MG EVERY DAY IV
     Route: 042
     Dates: start: 20090407, end: 20090412

REACTIONS (2)
  - LABORATORY TEST ABNORMAL [None]
  - RENAL FAILURE ACUTE [None]
